FAERS Safety Report 18886357 (Version 1)
Quarter: 2021Q1

REPORT INFORMATION
  Report Type: Spontaneous
  Country: IT (occurrence: IT)
  Receive Date: 20210212
  Receipt Date: 20210212
  Transmission Date: 20210420
  Serious: Yes (Hospitalization)
  Sender: FDA-Public Use
  Company Number: IT-TEVA-2021-IT-1878584

PATIENT
  Age: 37 Year
  Sex: Female
  Weight: 70 kg

DRUGS (2)
  1. ONTRUZANT [Concomitant]
     Active Substance: TRASTUZUMAB-DTTB
     Indication: BREAST NEOPLASM
     Dosage: 140 MG
     Route: 042
     Dates: start: 20201229, end: 20210113
  2. PACLITAXEL. [Suspect]
     Active Substance: PACLITAXEL
     Indication: BREAST NEOPLASM
     Dosage: 100 MG
     Route: 042
     Dates: start: 20201229, end: 20210113

REACTIONS (7)
  - Face oedema [Recovered/Resolved]
  - Macroglossia [Recovered/Resolved]
  - Dyspnoea [Recovered/Resolved]
  - Back pain [Recovered/Resolved]
  - Feeling hot [Recovered/Resolved]
  - Flushing [Recovered/Resolved]
  - Chills [Recovered/Resolved]

NARRATIVE: CASE EVENT DATE: 20210113
